FAERS Safety Report 22151978 (Version 1)
Quarter: 2023Q1

REPORT INFORMATION
  Report Type: Spontaneous
  Country: BR (occurrence: BR)
  Receive Date: 20230329
  Receipt Date: 20230329
  Transmission Date: 20230417
  Serious: Yes (Other)
  Sender: FDA-Public Use
  Company Number: BR-ORGANON-O2303BRA002344

PATIENT
  Sex: Female

DRUGS (1)
  1. ETONOGESTREL [Suspect]
     Active Substance: ETONOGESTREL
     Indication: Menstrual cycle management
     Dosage: 1 IMPLANT IN HER LEFT ARM
     Route: 059
     Dates: start: 20220108, end: 20230317

REACTIONS (6)
  - Blood loss anaemia [Unknown]
  - Adverse event [Unknown]
  - Drug intolerance [Unknown]
  - Heavy menstrual bleeding [Unknown]
  - Dysmenorrhoea [Unknown]
  - Product use in unapproved indication [Unknown]
